FAERS Safety Report 4588730-2 (Version None)
Quarter: 2005Q1

REPORT INFORMATION
  Report Type: 
  Country: None (occurrence: None)
  Receive Date: 20050216
  Receipt Date: 20050202
  Transmission Date: 20050727
  Serious: Yes (Other)
  Sender: FDA-Public Use
  Company Number: US_980604775

PATIENT
  Age: 49 Year
  Sex: Male
  Weight: 77 kg

DRUGS (5)
  1. HUMULIN R [Suspect]
     Indication: DIABETES MELLITUS
     Dates: start: 19960101, end: 19960101
  2. HUMULIN L [Suspect]
     Indication: DIABETES MELLITUS
     Dates: start: 19960101, end: 19960101
  3. NPH ILETIN I (BEEF-PORK) [Suspect]
  4. REGULAR ILETIN II [Suspect]
  5. LENTE ILETIN (BEEF-PORK) INSULIN ZINC [Suspect]
     Indication: DIABETES MELLITUS
     Dates: start: 19540101

REACTIONS (9)
  - ABNORMAL BEHAVIOUR [None]
  - BLINDNESS [None]
  - BLOOD GLUCOSE DECREASED [None]
  - DEPRESSED LEVEL OF CONSCIOUSNESS [None]
  - DIABETIC RETINOPATHY [None]
  - DYSARTHRIA [None]
  - ESCHERICHIA INFECTION [None]
  - HYPOGLYCAEMIA [None]
  - LOSS OF CONSCIOUSNESS [None]
